FAERS Safety Report 8559526-1 (Version None)
Quarter: 2012Q3

REPORT INFORMATION
  Report Type: 
  Country: None (occurrence: None)
  Receive Date: 20120802
  Receipt Date: 20120726
  Transmission Date: 20120928
  Serious: Yes (Hospitalization)
  Sender: FDA-Public Use
  Company Number: JP-BAYER-2012-069238

PATIENT
  Age: 70 Year
  Sex: Female

DRUGS (16)
  1. LEVOTHYROXINE SODIUM [Concomitant]
     Indication: HYPOTHYROIDISM
     Dosage: UNK
     Route: 048
     Dates: start: 20110423
  2. ASPIRIN [Concomitant]
     Indication: ARTERIAL THROMBOSIS
     Dosage: DAILY DOSE 100 MG
     Route: 048
     Dates: start: 20120619, end: 20120711
  3. NEXAVAR [Suspect]
     Indication: HEPATIC NEOPLASM MALIGNANT
     Dosage: 800MG/DAY
     Route: 048
     Dates: start: 20111215, end: 20120103
  4. URSO 250 [Concomitant]
     Indication: CHRONIC HEPATITIS
     Dosage: UNK
     Route: 048
     Dates: start: 20041101
  5. GLYCYRON [GLYCYRRHIZIC ACID] [Concomitant]
     Indication: CHRONIC HEPATITIS
     Dosage: UNK
     Route: 048
     Dates: start: 20101227
  6. MYSER [Concomitant]
     Indication: PALMAR-PLANTAR ERYTHRODYSAESTHESIA SYNDROME
     Dosage: UNK
     Route: 061
     Dates: start: 20120104
  7. NEO-MINOPHAGEN C [Concomitant]
     Indication: CHRONIC HEPATITIS
     Dosage: UNK
     Dates: start: 20041101
  8. PORTOLAC [Concomitant]
     Indication: HYPERAMMONAEMIA
     Dosage: UNK
     Route: 048
     Dates: start: 20100601
  9. FUROSEMIDE [Concomitant]
     Indication: OEDEMA DUE TO HEPATIC DISEASE
     Dosage: UNK
     Route: 048
     Dates: start: 20110221
  10. KERATINAMIN [Concomitant]
     Indication: PALMAR-PLANTAR ERYTHRODYSAESTHESIA SYNDROME
     Dosage: UNK
     Route: 061
     Dates: start: 20111121
  11. HIRUDOID [Concomitant]
     Indication: ARTERIAL THROMBOSIS
     Dosage: UNK
     Route: 061
     Dates: start: 20120619
  12. WARFARIN [Concomitant]
     Dosage: UNK
     Route: 048
     Dates: start: 20120712
  13. NEXAVAR [Suspect]
     Dosage: 400MG/DAY
     Dates: start: 20120104
  14. OMEPRAZOLE [Concomitant]
     Indication: GASTRITIS
     Dosage: UNK
     Route: 048
     Dates: start: 20100901
  15. LIVACT [Concomitant]
     Indication: HYPOALBUMINAEMIA
     Dosage: UNK
     Route: 048
     Dates: start: 20100901
  16. PURSENNID [Concomitant]
     Indication: CONSTIPATION
     Dosage: UNK
     Route: 048
     Dates: start: 20101108

REACTIONS (1)
  - PULMONARY EMBOLISM [None]
